FAERS Safety Report 5392186-X (Version None)
Quarter: 2007Q3

REPORT INFORMATION
  Report Type: 
  Country: None (occurrence: None)
  Receive Date: 20070717
  Receipt Date: 20070717
  Transmission Date: 20080115
  Serious: Yes (Hospitalization)
  Sender: FDA-Public Use
  Company Number: None

PATIENT
  Sex: Female
  Weight: 53.6 kg

DRUGS (1)
  1. ZYVOX [Suspect]

REACTIONS (1)
  - BONE MARROW FAILURE [None]
